FAERS Safety Report 4305864-8 (Version None)
Quarter: 2004Q1

REPORT INFORMATION
  Report Type: 
  Country: None (occurrence: None)
  Receive Date: 20040225
  Receipt Date: 20040212
  Transmission Date: 20041129
  Serious: Yes (Hospitalization)
  Sender: FDA-Public Use
  Company Number: 2004-112985-NL

PATIENT
  Age: 42 Year
  Sex: Female

DRUGS (2)
  1. MIRTAZAPINE [Suspect]
     Dosage: 240 MG ONCE
  2. DIAZEPAM [Suspect]
     Dosage: 100 MG ONCE

REACTIONS (6)
  - DEPRESSED LEVEL OF CONSCIOUSNESS [None]
  - HYPOTENSION [None]
  - INCOHERENT [None]
  - MIOSIS [None]
  - MUSCULAR WEAKNESS [None]
  - RESPIRATORY RATE DECREASED [None]
